FAERS Safety Report 16826622 (Version 2)
Quarter: 2019Q3

REPORT INFORMATION
  Report Type: Report from Study
  Country: US (occurrence: US)
  Receive Date: 20190919
  Receipt Date: 20190929
  Transmission Date: 20191005
  Serious: Yes (Other)
  Sender: FDA-Public Use
  Company Number: US-BIOGEN-2019BI00779895

PATIENT
  Sex: Male

DRUGS (1)
  1. TYSABRI [Suspect]
     Active Substance: NATALIZUMAB
     Indication: MULTIPLE SCLEROSIS
     Route: 065
     Dates: start: 20090729, end: 20190829

REACTIONS (4)
  - Cerebrovascular accident [Unknown]
  - Latent syphilis [Unknown]
  - Neurosyphilis [Unknown]
  - White matter lesion [Unknown]
